FAERS Safety Report 6028729-2 (Version None)
Quarter: 2009Q1

REPORT INFORMATION
  Report Type: 
  Country: None (occurrence: None)
  Receive Date: 20090106
  Receipt Date: 20081223
  Transmission Date: 20090719
  Serious: Yes (Death, Hospitalization)
  Sender: FDA-Public Use
  Company Number: US-AVENTIS-200816890EU

PATIENT
  Age: 12 Year
  Sex: Female

DRUGS (6)
  1. DOXYLAMINE [Suspect]
     Dosage: DOSE: UNK
  2. PAROXETINE HCL [Suspect]
     Dosage: DOSE: UNK
  3. QUETIAPINE FUMARATE [Suspect]
     Dosage: DOSE: UNK
  4. IBUPROFEN TABLETS [Concomitant]
     Dosage: DOSE: UNK
  5. COUGH AND COLD PREPARATIONS [Concomitant]
     Dosage: DOSE: UNK
  6. ALL OTHER THERAPEUTIC PRODUCTS [Concomitant]
     Dosage: DOSE: UNK
     Route: 048

REACTIONS (3)
  - BRAIN OEDEMA [None]
  - COMA [None]
  - PNEUMONIA ASPIRATION [None]
